FAERS Safety Report 10043786 (Version 1)
Quarter: 2014Q1

REPORT INFORMATION
  Report Type: Report from Study
  Country: DE (occurrence: DE)
  Receive Date: 20140328
  Receipt Date: 20140328
  Transmission Date: 20141002
  Serious: Yes (Hospitalization)
  Sender: FDA-Public Use
  Company Number: DE-MPIJNJ-2014JNJ001017

PATIENT
  Sex: 0

DRUGS (3)
  1. VELCADE [Suspect]
     Indication: PLASMA CELL MYELOMA
     Dosage: 2.6 MG, UNK
     Route: 058
     Dates: start: 20130909, end: 20131114
  2. ADRIAMYCIN [Concomitant]
     Indication: PLASMA CELL MYELOMA
     Dosage: 8 MG/M2, UNK
     Route: 042
     Dates: start: 20130909, end: 20131107
  3. DEXAMETHASONE [Concomitant]
     Indication: PLASMA CELL MYELOMA
     Dosage: 20 MG, UNK
     Route: 048
     Dates: start: 20130909, end: 20131123

REACTIONS (1)
  - Epididymitis [Recovered/Resolved]
